FAERS Safety Report 10640549 (Version 1)
Quarter: 2014Q4

REPORT INFORMATION
  Report Type: Spontaneous
  Country: None (occurrence: None)
  Receive Date: 20141205
  Receipt Date: 20141205
  Transmission Date: 20150529
  Serious: Yes (Hospitalization)
  Sender: FDA-Public Use
  Company Number: 2014120020

PATIENT
  Age: 66 Year
  Sex: Male

DRUGS (7)
  1. CARLOC (CARVEDILOL) [Concomitant]
  2. PREXUM PLUS (INDAPAMIDE, PERINDOPRIL) [Concomitant]
  3. UNAT (TORASEMIDE) [Suspect]
     Active Substance: TORSEMIDE
     Indication: DIURETIC THERAPY
     Route: 048
     Dates: start: 20140923, end: 20141023
  4. CELEBREX [Concomitant]
     Active Substance: CELECOXIB
  5. PANTOR (PANTOPRAZOLE SODIUM) [Concomitant]
  6. TAMSUL (TAMSULOSIN HYDROCHLORIDE) [Concomitant]
  7. WARFARIN SODIUM (WARFARIN SODIUM) [Concomitant]
     Active Substance: WARFARIN SODIUM

REACTIONS (4)
  - Prostatic disorder [None]
  - Peripheral swelling [None]
  - Urinary retention [None]
  - Cerebrovascular accident [None]
